FAERS Safety Report 5213711-5 (Version None)
Quarter: 2007Q1

REPORT INFORMATION
  Report Type: 
  Country: None (occurrence: None)
  Receive Date: 20070119
  Receipt Date: 20070116
  Transmission Date: 20070707
  Serious: Yes (Death, Other)
  Sender: FDA-Public Use
  Company Number: BE-BRISTOL-MYERS SQUIBB COMPANY-13644414

PATIENT
  Age: 4 Year
  Sex: Female

DRUGS (17)
  1. CARBOPLATIN [Suspect]
     Indication: NEUROBLASTOMA
  2. CISPLATIN [Suspect]
     Indication: NEUROBLASTOMA
  3. CISPLATIN [Suspect]
  4. CYCLOPHOSPHAMIDE [Suspect]
     Indication: NEUROBLASTOMA
  5. CYCLOPHOSPHAMIDE [Suspect]
  6. CYCLOPHOSPHAMIDE [Suspect]
  7. DOXORUBICIN HCL [Suspect]
     Indication: NEUROBLASTOMA
  8. DOXORUBICIN HCL [Suspect]
  9. ETOPOSIDE [Suspect]
     Indication: NEUROBLASTOMA
  10. VINCRISTINE [Suspect]
  11. VINCRISTINE [Suspect]
  12. VINCRISTINE [Suspect]
  13. CHLORMETHINE HCL [Suspect]
     Indication: NEUROBLASTOMA
  14. DACARBAZINE [Suspect]
     Indication: NEUROBLASTOMA
  15. MELPHALAN [Suspect]
     Indication: NEUROBLASTOMA
  16. BUSULFAN [Suspect]
     Indication: NEUROBLASTOMA
  17. TRETINOIN [Suspect]
     Indication: NEUROBLASTOMA

REACTIONS (4)
  - ACUTE MYELOMONOCYTIC LEUKAEMIA [None]
  - FUNGAL INFECTION [None]
  - GENE MUTATION [None]
  - MALIGNANT NEOPLASM PROGRESSION [None]
